FAERS Safety Report 19650504 (Version 1)
Quarter: 2021Q3

REPORT INFORMATION
  Report Type: Spontaneous
  Country: US (occurrence: US)
  Receive Date: 20210802
  Receipt Date: 20210802
  Transmission Date: 20211014
  Serious: No
  Sender: FDA-Public Use
  Company Number: None

PATIENT
  Age: 52 Year
  Sex: Male
  Weight: 155 kg

DRUGS (1)
  1. IOHEXOL (IOHEXOL 755MG/ML) [Suspect]
     Active Substance: IOHEXOL
     Indication: ANGIOGRAM
     Route: 042
     Dates: start: 20210414, end: 20210414

REACTIONS (10)
  - Mouth swelling [None]
  - Pruritus [None]
  - Rash [None]
  - Lip swelling [None]
  - Chapped lips [None]
  - Cheilitis [None]
  - Skin exfoliation [None]
  - Swelling [None]
  - Stomatitis [None]
  - Fixed eruption [None]

NARRATIVE: CASE EVENT DATE: 20210416
